FAERS Safety Report 6964772-4 (Version None)
Quarter: 2010Q3

REPORT INFORMATION
  Report Type: 
  Country: None (occurrence: None)
  Receive Date: 20100903
  Receipt Date: 20100824
  Transmission Date: 20110219
  Serious: No
  Sender: FDA-Public Use
  Company Number: US-PFIZER INC-2010106991

PATIENT
  Age: 5 Year
  Sex: Male

DRUGS (1)
  1. CLEOCIN [Suspect]
     Route: 048

REACTIONS (1)
  - ONYCHOCLASIS [None]
